FAERS Safety Report 9518631 (Version 1)
Quarter: 2013Q1

REPORT INFORMATION
  Report Type: Spontaneous
  Country: US (occurrence: None)
  Receive Date: 20130305
  Receipt Date: 20130305
  Transmission Date: 20140127
  Serious: Yes (Hospitalization)
  Sender: FDA-Public Use
  Company Number: 163-21880-11123626

PATIENT
  Age: 73 Year
  Sex: Female

DRUGS (2)
  1. REVLIMID (LENALIDOMIDE) (25 MILLIGRAM, CAPSULES) [Suspect]
     Indication: PLASMA CELL MYELOMA
     Dosage: 25 MG, DAILY FOR 21 DAYS, PO
     Route: 048
     Dates: start: 20110921, end: 20111207
  2. DEXAMETHASONE (DEXAMETHASONE) (UNKNOWN) [Suspect]
     Dosage: 40 MG, WEEKLY, UNK
     Dates: start: 20110919

REACTIONS (2)
  - Syncope [None]
  - Haemoglobin decreased [None]
